FAERS Safety Report 7302104-2 (Version None)
Quarter: 2011Q1

REPORT INFORMATION
  Report Type: 
  Country: None (occurrence: None)
  Receive Date: 20110218
  Receipt Date: 20110216
  Transmission Date: 20110831
  Serious: Yes (Death)
  Sender: FDA-Public Use
  Company Number: US-MEDIMMUNE-MEDI-0012663

PATIENT
  Sex: Male

DRUGS (10)
  1. TYLENOL CHILD [Concomitant]
  2. ASPIRIN [Concomitant]
  3. ENALAPRILAT [Concomitant]
  4. AMOXICILLIN [Concomitant]
  5. SPIRONOLACTONE [Concomitant]
  6. FLOVENT [Concomitant]
  7. ALBUTEROL [Concomitant]
  8. LASIX [Concomitant]
  9. SYNAGIS [Suspect]
     Route: 030
     Dates: end: 20100114
  10. DIGOXIN [Concomitant]

REACTIONS (1)
  - CARDIAC FAILURE [None]
